FAERS Safety Report 9856639 (Version 2)
Quarter: 2014Q1

REPORT INFORMATION
  Report Type: Spontaneous
  Country: US (occurrence: US)
  Receive Date: 20140130
  Receipt Date: 20140130
  Transmission Date: 20141002
  Serious: Yes (Hospitalization)
  Sender: FDA-Public Use
  Company Number: US-GLAXOSMITHKLINE-A0802605A

PATIENT
  Age: 67 Year
  Sex: Male
  Weight: 115 kg

DRUGS (8)
  1. AVANDIA [Suspect]
     Indication: TYPE 2 DIABETES MELLITUS
     Route: 048
     Dates: start: 19990701, end: 20071216
  2. AVANDAMET [Suspect]
     Indication: TYPE 2 DIABETES MELLITUS
     Route: 048
     Dates: start: 20030821
  3. GLUCOPHAGE [Concomitant]
  4. DIABETA [Concomitant]
  5. LIPITOR [Concomitant]
  6. MOTRIN [Concomitant]
  7. NORVASC [Concomitant]
  8. HYZAAR [Concomitant]

REACTIONS (3)
  - Arteriosclerosis coronary artery [Not Recovered/Not Resolved]
  - Cardiovascular disorder [Unknown]
  - Acute myocardial infarction [Unknown]
